FAERS Safety Report 18585477 (Version 2)
Quarter: 2020Q4

REPORT INFORMATION
  Report Type: Spontaneous
  Country: DE (occurrence: DE)
  Receive Date: 20201207
  Receipt Date: 20201215
  Transmission Date: 20210114
  Serious: Yes (Other)
  Sender: FDA-Public Use
  Company Number: NVSC2020DE320346

PATIENT
  Sex: Female

DRUGS (8)
  1. TRIAMCINOLONE [Suspect]
     Active Substance: TRIAMCINOLONE
     Indication: INTERVERTEBRAL DISC PROTRUSION
     Dosage: INJECTION THERAPY WITH 4 TRIAMCINOLONE INJECTIONS UNDER ULTRASOUND CONTROL BECAUSE OF A HERNIATED DI
     Route: 065
     Dates: start: 2020
  2. PREDNISOLON JENAPHARM [Suspect]
     Active Substance: PREDNISOLONE
     Dosage: 20 MG, QD
     Route: 048
     Dates: start: 2018
  3. DEXAMETHASONE. [Suspect]
     Active Substance: DEXAMETHASONE
     Indication: EPICONDYLITIS
  4. PREDNISOLON JENAPHARM [Suspect]
     Active Substance: PREDNISOLONE
     Indication: EPICONDYLITIS
     Dosage: 20 MG, QD
     Route: 048
     Dates: start: 201810
  5. DEXAMETHASONE. [Suspect]
     Active Substance: DEXAMETHASONE
     Indication: ARTHRALGIA
     Dosage: 9 INJECTIONS FIRST IN THE ARM, ALTHOUGH IT IS UNCLEAR WHETHER THE JOINT OR THE MUSCLE. AFTER ABOUT 2
     Route: 065
     Dates: start: 20181016, end: 20181204
  6. PREDNISOLON JENAPHARM [Suspect]
     Active Substance: PREDNISOLONE
     Indication: ARTHRALGIA
     Dosage: 20 MG, QD
     Route: 048
     Dates: start: 201810
  7. LIPOTALON [Suspect]
     Active Substance: DEXAMETHASONE PALMITATE
     Indication: ARTHRALGIA
     Dosage: 9 INJECTIONS. FIRST IN THE ARM, ALTHOUGH IT IS UNCLEAR WHETHER THE JOINT OR THE MUSCLE. AFTER ABOUT
     Route: 065
     Dates: start: 20181016, end: 20181204
  8. LIPOTALON [Suspect]
     Active Substance: DEXAMETHASONE PALMITATE
     Indication: EPICONDYLITIS

REACTIONS (19)
  - Hallucination [Not Recovered/Not Resolved]
  - Balance disorder [Not Recovered/Not Resolved]
  - Sleep disorder [Not Recovered/Not Resolved]
  - Nausea [Recovered/Resolved]
  - Lung disorder [Not Recovered/Not Resolved]
  - Arthralgia [Not Recovered/Not Resolved]
  - Application site pain [Not Recovered/Not Resolved]
  - Influenza like illness [Not Recovered/Not Resolved]
  - Pyrexia [Not Recovered/Not Resolved]
  - Muscular weakness [Not Recovered/Not Resolved]
  - Joint instability [Not Recovered/Not Resolved]
  - Emphysema [Not Recovered/Not Resolved]
  - Cushing^s syndrome [Not Recovered/Not Resolved]
  - Blood pressure increased [Not Recovered/Not Resolved]
  - Blood glucose increased [Not Recovered/Not Resolved]
  - Pelvic floor muscle weakness [Not Recovered/Not Resolved]
  - Fluid retention [Not Recovered/Not Resolved]
  - Disturbance in attention [Not Recovered/Not Resolved]
  - Dermatitis allergic [Not Recovered/Not Resolved]

NARRATIVE: CASE EVENT DATE: 2018
